FAERS Safety Report 7645321-4 (Version None)
Quarter: 2011Q3

REPORT INFORMATION
  Report Type: 
  Country: None (occurrence: None)
  Receive Date: 20110729
  Receipt Date: 20110727
  Transmission Date: 20111222
  Serious: No
  Sender: FDA-Public Use
  Company Number: US-TEVA-293257USA

PATIENT
  Sex: Male
  Weight: 104.42 kg

DRUGS (4)
  1. PROAIR HFA [Suspect]
     Indication: ASTHMA
     Dosage: PRN
     Route: 055
  2. MOXIFLOXACIN HYDROCHLORIDE [Concomitant]
  3. CIPROFLOXACIN [Concomitant]
  4. PAIN MED (NOS) [Concomitant]

REACTIONS (2)
  - RESPIRATORY TRACT INFECTION [None]
  - URINE ALCOHOL TEST POSITIVE [None]
